FAERS Safety Report 6179085-0 (Version None)
Quarter: 2009Q2

REPORT INFORMATION
  Report Type: 
  Country: None (occurrence: None)
  Receive Date: 20090505
  Receipt Date: 20090427
  Transmission Date: 20091009
  Serious: Yes (Other)
  Sender: FDA-Public Use
  Company Number: GB-PFIZER INC-2008038290

PATIENT
  Sex: Male

DRUGS (2)
  1. LIPITOR [Suspect]
  2. ACETAMINOPHEN WITH PROPOXYPHENE HCL TAB [Concomitant]

REACTIONS (2)
  - AMNESIA [None]
  - DISTURBANCE IN ATTENTION [None]
